FAERS Safety Report 20862140 (Version 1)
Quarter: 2022Q2

REPORT INFORMATION
  Report Type: Spontaneous
  Country: US (occurrence: US)
  Receive Date: 20220523
  Receipt Date: 20220523
  Transmission Date: 20220721
  Serious: Yes (Hospitalization)
  Sender: FDA-Public Use
  Company Number: ENDG22-01864

PATIENT
  Sex: Male
  Weight: 17 kg

DRUGS (6)
  1. BOSENTAN [Suspect]
     Active Substance: BOSENTAN
     Indication: Pulmonary hypertension
     Dosage: UNK UNKNOWN, UNKNOWN
     Route: 065
  2. SILDENAFIL [Concomitant]
     Active Substance: SILDENAFIL
     Indication: Pulmonary hypertension
     Dosage: 20 MG, TID
  3. ENALAPRIL [Concomitant]
     Active Substance: ENALAPRIL
     Indication: Cardiac failure congestive
     Dosage: 2 MG, BID
  4. FUROSEMIDE [Concomitant]
     Active Substance: FUROSEMIDE
     Indication: Cardiac failure congestive
     Dosage: 20 MG, TID
  5. BUDESONIDE [Concomitant]
     Active Substance: BUDESONIDE
     Indication: Chronic respiratory disease
     Dosage: 3 MG, BID
  6. ASPIRIN [Concomitant]
     Active Substance: ASPIRIN
     Indication: Fontan procedure
     Dosage: 81 MG, DAILY

REACTIONS (2)
  - Cardiac disorder [Unknown]
  - Off label use [Unknown]

NARRATIVE: CASE EVENT DATE: 20220101
